FAERS Safety Report 24666405 (Version 1)
Quarter: 2024Q4

REPORT INFORMATION
  Report Type: Spontaneous
  Country: RU (occurrence: RU)
  Receive Date: 20241126
  Receipt Date: 20241126
  Transmission Date: 20250114
  Serious: Yes (Death)
  Sender: ROCHE
  Company Number: RU-ROCHE-10000136088

PATIENT
  Age: 55 Year

DRUGS (2)
  1. ATEZOLIZUMAB [Suspect]
     Active Substance: ATEZOLIZUMAB
     Indication: Hepatocellular carcinoma
     Route: 042
     Dates: start: 20220507
  2. BEVACIZUMAB [Suspect]
     Active Substance: BEVACIZUMAB
     Indication: Hepatocellular carcinoma
     Route: 042
     Dates: start: 20220507

REACTIONS (15)
  - Asthenia [Fatal]
  - Hyperhidrosis [Fatal]
  - Abdominal distension [Fatal]
  - Ascites [Fatal]
  - Pancreatic cyst [Fatal]
  - Cholelithiasis [Fatal]
  - Hyperplasia [Fatal]
  - Hypertension [Fatal]
  - Blood bilirubin increased [Fatal]
  - Alanine aminotransferase increased [Fatal]
  - Aspartate aminotransferase increased [Fatal]
  - Thrombocytopenia [Fatal]
  - Haemorrhage [Fatal]
  - Blood glucose increased [Fatal]
  - Disease progression [Fatal]

NARRATIVE: CASE EVENT DATE: 20220527
